FAERS Safety Report 5097085-9 (Version None)
Quarter: 2006Q3

REPORT INFORMATION
  Report Type: 
  Country: None (occurrence: None)
  Receive Date: 20060906
  Receipt Date: 20060523
  Transmission Date: 20061208
  Serious: Yes (Hospitalization, Other)
  Sender: FDA-Public Use
  Company Number: US-AMGEN-STX180544

PATIENT
  Sex: Female

DRUGS (16)
  1. ENBREL [Suspect]
     Indication: RHEUMATOID ARTHRITIS
     Dates: start: 20040210
  2. METHOTREXATE [Concomitant]
     Route: 065
  3. CLINORIL [Concomitant]
     Route: 065
  4. PREDNISONE TAB [Concomitant]
     Route: 065
  5. FISH OIL [Concomitant]
  6. PREMARIN [Concomitant]
  7. VITAMIN E [Concomitant]
  8. MULTIVITAMIN [Concomitant]
  9. VITAMIN D [Concomitant]
  10. PROPRANOLOL [Concomitant]
  11. ZOLOFT [Concomitant]
  12. FOSAMAX [Concomitant]
  13. ATROVENT [Concomitant]
     Route: 055
  14. ALBUTEROL [Concomitant]
     Route: 055
  15. CALCIUM GLUCONATE [Concomitant]
  16. TYLENOL [Concomitant]

REACTIONS (10)
  - ACUTE RESPIRATORY DISTRESS SYNDROME [None]
  - CHRONIC OBSTRUCTIVE PULMONARY DISEASE [None]
  - HYPOTENSION [None]
  - INFLUENZA LIKE ILLNESS [None]
  - NEPHROLITHIASIS [None]
  - PLEURAL EFFUSION [None]
  - PNEUMONIA [None]
  - PULMONARY FIBROSIS [None]
  - SEPTIC SHOCK [None]
  - URINARY TRACT INFECTION [None]
